FAERS Safety Report 9235463 (Version 1)
Quarter: 2013Q2

REPORT INFORMATION
  Report Type: Other
  Country: US (occurrence: US)
  Receive Date: 20130417
  Receipt Date: 20130417
  Transmission Date: 20140414
  Serious: Yes (Other)
  Sender: FDA-Public Use
  Company Number: US-SHIRE-ALL1-2013-02296

PATIENT
  Age: 11 Year
  Sex: Male
  Weight: 43.99 kg

DRUGS (8)
  1. ELAPRASE [Suspect]
     Indication: MUCOPOLYSACCHARIDOSIS II
     Dosage: 18 MG, 1X/WEEK
     Route: 041
     Dates: start: 2010
  2. ELAPRASE [Suspect]
     Dosage: UNK, UNKNOWN
     Route: 041
  3. TYLENOL /00020001/ [Concomitant]
     Indication: CHILLS
     Dosage: UNK, UNKNOWN
     Route: 048
  4. TYLENOL /00020001/ [Concomitant]
     Indication: EYE DISORDER
  5. TYLENOL /00020001/ [Concomitant]
     Indication: RESPIRATORY RATE INCREASED
  6. TYLENOL /00020001/ [Concomitant]
     Indication: PYREXIA
  7. TYLENOL /00020001/ [Concomitant]
     Indication: PREMEDICATION
  8. BENADRYL                           /00000402/ [Concomitant]
     Indication: PREMEDICATION
     Dosage: UNK, UNKNOWN

REACTIONS (5)
  - Respiratory rate increased [Recovered/Resolved]
  - Chills [Recovered/Resolved]
  - Pyrexia [Not Recovered/Not Resolved]
  - Infusion related reaction [Not Recovered/Not Resolved]
  - Incorrect storage of drug [Unknown]
